FAERS Safety Report 7466964-7 (Version None)
Quarter: 2011Q2

REPORT INFORMATION
  Report Type: 
  Country: None (occurrence: None)
  Receive Date: 20110509
  Receipt Date: 20101007
  Transmission Date: 20111010
  Serious: No
  Sender: FDA-Public Use
  Company Number: US-ALEXION-A201001270

PATIENT
  Sex: Female

DRUGS (9)
  1. MULTI-VITAMINS [Concomitant]
     Dosage: UNK
     Route: 048
  2. CALCIUM [Concomitant]
     Dosage: UNK
     Route: 048
  3. ZOCOR [Concomitant]
     Dosage: UNK
     Route: 048
  4. FOLIC ACID [Concomitant]
     Dosage: UNK
     Route: 048
  5. COUMADIN [Concomitant]
     Dosage: 5 MG, QOD
     Route: 048
  6. FOSAMAX [Concomitant]
     Dosage: UNK
  7. SOLIRIS [Suspect]
     Indication: PAROXYSMAL NOCTURNAL HAEMOGLOBINURIA
     Dosage: UNK
     Route: 042
     Dates: start: 20080401
  8. COUMADIN [Concomitant]
     Dosage: 7.5 MG, QOD
     Route: 048
  9. AMBIEN [Concomitant]
     Dosage: 5 MG, UNK
     Route: 048

REACTIONS (4)
  - PLATELET COUNT DECREASED [None]
  - UPPER RESPIRATORY TRACT INFECTION [None]
  - NASOPHARYNGITIS [None]
  - WHITE BLOOD CELL COUNT DECREASED [None]
